FAERS Safety Report 15171120 (Version 2)
Quarter: 2018Q3

REPORT INFORMATION
  Report Type: Spontaneous
  Country: AU (occurrence: AU)
  Receive Date: 20180720
  Receipt Date: 20180727
  Transmission Date: 20181010
  Serious: Yes (Other)
  Sender: FDA-Public Use
  Company Number: AU-PFIZER INC-2018287593

PATIENT
  Age: 55 Year
  Sex: Female

DRUGS (3)
  1. LIGNOCAINE [Suspect]
     Active Substance: LIDOCAINE HYDROCHLORIDE
     Indication: VENTRICULAR TACHYCARDIA
     Dosage: UNK
  2. LIGNOCAINE [Suspect]
     Active Substance: LIDOCAINE HYDROCHLORIDE
     Dosage: UNK
  3. AMIODARONE [Concomitant]
     Active Substance: AMIODARONE
     Indication: VENTRICULAR TACHYCARDIA
     Dosage: UNK

REACTIONS (2)
  - Sinus bradycardia [Recovered/Resolved]
  - Low cardiac output syndrome [Recovered/Resolved]
